FAERS Safety Report 25453340 (Version 1)
Quarter: 2025Q2

REPORT INFORMATION
  Report Type: Report from Study
  Country: CA (occurrence: CA)
  Receive Date: 20250618
  Receipt Date: 20250618
  Transmission Date: 20250716
  Serious: Yes (Other)
  Sender: ABBVIE
  Company Number: CA-ABBVIE-6327740

PATIENT
  Age: 73 Year
  Sex: Female

DRUGS (23)
  1. VENCLEXTA [Suspect]
     Active Substance: VENETOCLAX
     Indication: Acute myeloid leukaemia
     Route: 048
     Dates: start: 20240830, end: 20240830
  2. VENCLEXTA [Suspect]
     Active Substance: VENETOCLAX
     Indication: Acute myeloid leukaemia
     Route: 048
     Dates: start: 20240831, end: 20240831
  3. VENCLEXTA [Suspect]
     Active Substance: VENETOCLAX
     Indication: Acute myeloid leukaemia
     Route: 048
     Dates: start: 20240901, end: 20240903
  4. VENCLEXTA [Suspect]
     Active Substance: VENETOCLAX
     Indication: Acute myeloid leukaemia
     Route: 048
     Dates: start: 20240904, end: 20241014
  5. VENCLEXTA [Suspect]
     Active Substance: VENETOCLAX
     Indication: Acute myeloid leukaemia
     Route: 048
     Dates: start: 20241011, end: 20241108
  6. COVID-19 vaccine mRNA [Concomitant]
     Indication: Product used for unknown indication
  7. AZACITIDINE [Suspect]
     Active Substance: AZACITIDINE
     Indication: Acute myeloid leukaemia
     Route: 065
     Dates: start: 20240830, end: 20240905
  8. AZACITIDINE [Suspect]
     Active Substance: AZACITIDINE
     Indication: Acute myeloid leukaemia
     Route: 065
     Dates: start: 20241015, end: 20241023
  9. ALLOPURINOL [Concomitant]
     Active Substance: ALLOPURINOL
     Indication: Prophylaxis
     Route: 048
     Dates: start: 20240904, end: 20240905
  10. FIGRASTIM [Concomitant]
     Indication: Leukaemia
     Dosage: DOSAGE: 300 ?G
     Route: 058
     Dates: start: 20241105, end: 20241118
  11. PIPERACILLIN SODIUM\TAZOBACTAM SODIUM [Concomitant]
     Active Substance: PIPERACILLIN SODIUM\TAZOBACTAM SODIUM
     Indication: Leukaemia
     Route: 042
     Dates: start: 20241104, end: 20241106
  12. PIPERACILLIN SODIUM\TAZOBACTAM SODIUM [Concomitant]
     Active Substance: PIPERACILLIN SODIUM\TAZOBACTAM SODIUM
     Indication: Leukaemia
     Route: 042
     Dates: start: 20241106, end: 20241107
  13. PIPERACILLIN SODIUM\TAZOBACTAM SODIUM [Concomitant]
     Active Substance: PIPERACILLIN SODIUM\TAZOBACTAM SODIUM
     Indication: Leukaemia
     Route: 042
     Dates: start: 20241114, end: 20241117
  14. CEFTAZIDIME [Concomitant]
     Active Substance: CEFTAZIDIME
     Indication: Leukaemia
     Route: 042
     Dates: start: 20241104, end: 20241104
  15. MEROPENEM [Concomitant]
     Active Substance: MEROPENEM
     Indication: Leukaemia
     Route: 042
     Dates: start: 20241117, end: 20241119
  16. VANCOMYCIN [Concomitant]
     Active Substance: VANCOMYCIN
     Indication: Leukaemia
     Route: 042
     Dates: start: 20241113, end: 20241113
  17. VANCOMYCIN [Concomitant]
     Active Substance: VANCOMYCIN
     Indication: Leukaemia
     Route: 042
     Dates: start: 20241117, end: 20241119
  18. VANCOMYCIN [Concomitant]
     Active Substance: VANCOMYCIN
     Indication: Leukaemia
     Route: 042
     Dates: start: 20241113, end: 20241113
  19. AZITHROMYCIN [Concomitant]
     Active Substance: AZITHROMYCIN
     Indication: Leukaemia
     Route: 042
     Dates: start: 20241117
  20. SODIUM PHOSPHATE [Concomitant]
     Active Substance: SODIUM PHOSPHATE
     Indication: Hypophosphataemia
     Route: 042
     Dates: start: 20240906, end: 20240906
  21. POTASSIUM PHOSPHATE [Concomitant]
     Active Substance: POTASSIUM PHOSPHATE
     Indication: Hypophosphataemia
     Route: 042
     Dates: start: 20240905, end: 20240905
  22. POTASSIUM PHOSPHATE [Concomitant]
     Active Substance: POTASSIUM PHOSPHATE
     Indication: Hypophosphataemia
     Route: 042
     Dates: start: 20241116, end: 20241118
  23. ONDANSETRON [Concomitant]
     Active Substance: ONDANSETRON
     Indication: Nausea
     Dosage: 1 TABLET
     Route: 048
     Dates: start: 20241026, end: 20241104

REACTIONS (1)
  - Depressed level of consciousness [Recovered/Resolved]

NARRATIVE: CASE EVENT DATE: 20241120
